FAERS Safety Report 7142553-9 (Version None)
Quarter: 2010Q4

REPORT INFORMATION
  Report Type: 
  Country: None (occurrence: None)
  Receive Date: 20101112
  Receipt Date: 20100805
  Transmission Date: 20110411
  Serious: No
  Sender: FDA-Public Use
  Company Number: 1000015497

PATIENT
  Age: 66 Year
  Sex: Female

DRUGS (13)
  1. SAVELLA [Suspect]
     Indication: FIBROMYALGIA
     Dosage: 12.5 MG (12.5 MG, 1 IN 1 D),ORAL; 25 MG (12.5 MG, 2 IN 1 D), ORAL; 50 MG (25 MG, 2 IN 1 D), ORAL
     Route: 048
     Dates: start: 20100801, end: 20100801
  2. SAVELLA [Suspect]
     Indication: FIBROMYALGIA
     Dosage: 12.5 MG (12.5 MG, 1 IN 1 D),ORAL; 25 MG (12.5 MG, 2 IN 1 D), ORAL; 50 MG (25 MG, 2 IN 1 D), ORAL
     Route: 048
     Dates: start: 20100802, end: 20100803
  3. SAVELLA [Suspect]
     Indication: FIBROMYALGIA
     Dosage: 12.5 MG (12.5 MG, 1 IN 1 D),ORAL; 25 MG (12.5 MG, 2 IN 1 D), ORAL; 50 MG (25 MG, 2 IN 1 D), ORAL
     Route: 048
     Dates: start: 20100804
  4. ALENDRONATE SODIUM [Concomitant]
  5. CALCIUM + VITAMIN D [Concomitant]
  6. CYCLOBENZAPRINE [Concomitant]
  7. LIPITOR [Concomitant]
  8. FERROUS SULFATE [Concomitant]
  9. GABAPENTIN [Concomitant]
  10. TRAMADOL [Concomitant]
  11. ACETAMINOPHEN [Concomitant]
  12. TEKTURNA [Concomitant]
  13. VITAMIN D [Concomitant]

REACTIONS (2)
  - ANXIETY [None]
  - INSOMNIA [None]
